FAERS Safety Report 9996617 (Version 3)
Quarter: 2014Q2

REPORT INFORMATION
  Report Type: Spontaneous
  Country: DE (occurrence: DE)
  Receive Date: 20140311
  Receipt Date: 20140512
  Transmission Date: 20141212
  Serious: Yes (Hospitalization, Other)
  Sender: FDA-Public Use
  Company Number: PHHY2014DE028701

PATIENT
  Sex: Female

DRUGS (3)
  1. ZOMETA [Suspect]
     Indication: METASTASES TO BONE
     Dosage: 4 MG, UNK
     Route: 042
     Dates: start: 200403, end: 201110
  2. ZOMETA [Suspect]
     Dosage: 2 MG, UNK
     Route: 042
     Dates: start: 20101104
  3. FEMARA [Suspect]
     Indication: BREAST CANCER
     Dosage: 2.5 MG, PER DAY
     Route: 048
     Dates: start: 200401, end: 200801

REACTIONS (12)
  - Coronary artery disease [Recovered/Resolved]
  - Humerus fracture [Recovering/Resolving]
  - Metastases to spine [Not Recovered/Not Resolved]
  - Metastases to bone [Recovering/Resolving]
  - Metastases to lung [Not Recovered/Not Resolved]
  - Metastases to liver [Recovering/Resolving]
  - Breast cancer [Not Recovered/Not Resolved]
  - Malignant neoplasm progression [Unknown]
  - Nephropathy toxic [Unknown]
  - Polyneuropathy [Not Recovered/Not Resolved]
  - Proteinuria [Recovered/Resolved]
  - Blood creatinine increased [Recovering/Resolving]
